FAERS Safety Report 7359779-1 (Version None)
Quarter: 2011Q1

REPORT INFORMATION
  Report Type: 
  Country: None (occurrence: None)
  Receive Date: 20110317
  Receipt Date: 20101227
  Transmission Date: 20110831
  Serious: Yes (Life-Threatening, Other)
  Sender: FDA-Public Use
  Company Number: US-BAYER-201016878NA

PATIENT
  Sex: Female
  Weight: 138 kg

DRUGS (8)
  1. AVELOX [Concomitant]
     Indication: PRODUCT USED FOR UNKNOWN INDICATION
     Dates: start: 20080101
  2. UNCODEABLE ^UNCLASSIFIABLE^ [Concomitant]
  3. OCELLA [Suspect]
     Indication: PRODUCT USED FOR UNKNOWN INDICATION
     Route: 048
     Dates: start: 20080801, end: 20081215
  4. YASMIN [Suspect]
     Indication: PRODUCT USED FOR UNKNOWN INDICATION
     Route: 048
     Dates: start: 20080201, end: 20080715
  5. AUGMENTIN '125' [Concomitant]
     Indication: COUGH
     Dates: start: 20081101
  6. VITAMIN B [Concomitant]
     Indication: PRODUCT USED FOR UNKNOWN INDICATION
  7. AUGMENTIN '125' [Concomitant]
     Indication: CHEST PAIN
  8. UNCODEABLE ^UNCLASSIFIABLE^ [Concomitant]
     Indication: MEDICAL DIET

REACTIONS (10)
  - PULMONARY EMBOLISM [None]
  - MENORRHAGIA [None]
  - THROMBOSIS [None]
  - MIGRAINE [None]
  - FATIGUE [None]
  - PNEUMONIA [None]
  - LUNG DISORDER [None]
  - COUGH [None]
  - CHEST PAIN [None]
  - METRORRHAGIA [None]
